FAERS Safety Report 10567999 (Version 1)
Quarter: 2014Q4

REPORT INFORMATION
  Report Type: Spontaneous
  Country: US (occurrence: None)
  Receive Date: 20141105
  Receipt Date: 20141105
  Transmission Date: 20150529
  Serious: Yes (Other)
  Sender: FDA-Public Use
  Company Number: None

PATIENT
  Age: 74 Year
  Sex: Female
  Weight: 77.11 kg

DRUGS (1)
  1. HYDROCODONE ACETAMINOPHEN [Suspect]
     Active Substance: ACETAMINOPHEN\HYDROCODONE BITARTRATE
     Indication: ROTATOR CUFF REPAIR
     Dosage: 1-2 PILLS

REACTIONS (3)
  - Fall [None]
  - Hallucinations, mixed [None]
  - Rotator cuff syndrome [None]

NARRATIVE: CASE EVENT DATE: 20140110
